FAERS Safety Report 10006793 (Version 1)
Quarter: 2014Q1

REPORT INFORMATION
  Report Type: Spontaneous
  Country: US (occurrence: US)
  Receive Date: 20140313
  Receipt Date: 20140313
  Transmission Date: 20141002
  Serious: No
  Sender: FDA-Public Use
  Company Number: US-SHIRE-US201400111

PATIENT
  Sex: 0

DRUGS (2)
  1. VYVANSE [Suspect]
     Indication: PRODUCT USED FOR UNKNOWN INDICATION
     Dosage: 40 MG, UNKNOWN
     Route: 048
     Dates: start: 2013
  2. LORATADINE D [Suspect]
     Indication: HYPERSENSITIVITY
     Dosage: UNK, UNKNOWN
     Route: 065

REACTIONS (2)
  - Somnolence [Unknown]
  - Drug effect decreased [Unknown]
